APPROVED DRUG PRODUCT: SEVELAMER HYDROCHLORIDE
Active Ingredient: SEVELAMER HYDROCHLORIDE
Strength: 800MG
Dosage Form/Route: TABLET;ORAL
Application: A213145 | Product #002 | TE Code: AB
Applicant: LUPIN LTD
Approved: Jun 16, 2021 | RLD: No | RS: No | Type: RX